FAERS Safety Report 9966827 (Version 1)
Quarter: 2014Q1

REPORT INFORMATION
  Report Type: Report from Study
  Country: US (occurrence: US)
  Receive Date: 20140305
  Receipt Date: 20140305
  Transmission Date: 20141002
  Serious: No
  Sender: FDA-Public Use
  Company Number: US-ABBVIE-13P-163-1122818-00

PATIENT
  Age: 63 Year
  Sex: Male

DRUGS (16)
  1. HUMIRA [Suspect]
     Indication: RHEUMATOID ARTHRITIS
     Dates: start: 201302
  2. ACIPHEX [Concomitant]
     Indication: GASTROOESOPHAGEAL REFLUX DISEASE
  3. BABY ASPIRIN [Concomitant]
     Indication: PRODUCT USED FOR UNKNOWN INDICATION
  4. FLOMAX [Concomitant]
     Indication: PROSTATOMEGALY
  5. FOLIC ACID [Concomitant]
     Indication: PRODUCT USED FOR UNKNOWN INDICATION
  6. NORVASC [Concomitant]
     Indication: HYPERTENSION
  7. PLAVIX [Concomitant]
     Indication: THROMBOSIS PROPHYLAXIS
  8. PRO AIR [Concomitant]
     Indication: CHRONIC OBSTRUCTIVE PULMONARY DISEASE
  9. SEREVENT [Concomitant]
     Indication: CHRONIC OBSTRUCTIVE PULMONARY DISEASE
  10. REQUIP [Concomitant]
     Indication: RESTLESS LEGS SYNDROME
  11. METOPROLOL [Concomitant]
     Indication: HYPERTENSION
  12. ZETIA [Concomitant]
     Indication: BLOOD CHOLESTEROL
  13. NITROGLYCERIN [Concomitant]
     Indication: CHEST PAIN
  14. FUROSEMIDE [Concomitant]
     Indication: DIURETIC THERAPY
  15. HYDRALAZINE [Concomitant]
     Indication: HYPERTENSION
  16. CALCITRIOL [Concomitant]
     Indication: VITAMIN SUPPLEMENTATION

REACTIONS (1)
  - Hypersensitivity [Not Recovered/Not Resolved]
